FAERS Safety Report 7425488-3 (Version None)
Quarter: 2011Q2

REPORT INFORMATION
  Report Type: 
  Country: None (occurrence: None)
  Receive Date: 20110420
  Receipt Date: 20110418
  Transmission Date: 20111010
  Serious: Yes (Other)
  Sender: FDA-Public Use
  Company Number: US-PFIZER INC-2011084773

PATIENT
  Sex: Male

DRUGS (4)
  1. LIPITOR [Suspect]
     Dosage: 20 MG, UNK
  2. LIPITOR [Suspect]
     Dosage: 20 MG, UNK
  3. LIPITOR [Suspect]
     Dosage: 40 MG, UNK
  4. PLAVIX [Concomitant]
     Dosage: UNK

REACTIONS (5)
  - HYPERTENSION [None]
  - FATIGUE [None]
  - MYALGIA [None]
  - VASCULAR GRAFT [None]
  - STENT PLACEMENT [None]
